FAERS Safety Report 10496791 (Version 1)
Quarter: 2014Q4

REPORT INFORMATION
  Report Type: Report from Study
  Country: US (occurrence: US)
  Receive Date: 20141006
  Receipt Date: 20141006
  Transmission Date: 20150528
  Serious: Yes (Hospitalization)
  Sender: FDA-Public Use
  Company Number: US-BIOGENIDEC-2014BI100221

PATIENT
  Age: 56 Year
  Sex: Male

DRUGS (1)
  1. AVONEX [Suspect]
     Active Substance: INTERFERON BETA-1A
     Indication: MULTIPLE SCLEROSIS
     Route: 030
     Dates: start: 19970323

REACTIONS (10)
  - Ocular hyperaemia [Recovered/Resolved]
  - Haemorrhage [Recovered/Resolved]
  - Multiple sclerosis relapse [Recovered/Resolved]
  - Prostatomegaly [Recovered/Resolved]
  - Rib fracture [Recovered/Resolved]
  - Musculoskeletal stiffness [Recovered/Resolved]
  - Face injury [Recovered/Resolved]
  - Fall [Recovered/Resolved]
  - Drug dose omission [Recovered/Resolved]
  - Pain [Recovered/Resolved]

NARRATIVE: CASE EVENT DATE: 2004
